APPROVED DRUG PRODUCT: XALKORI
Active Ingredient: CRIZOTINIB
Strength: 20MG
Dosage Form/Route: CAPSULE, PELLETS;ORAL
Application: N217581 | Product #001
Applicant: PF PRISM CV
Approved: Sep 7, 2023 | RLD: Yes | RS: No | Type: RX

PATENTS:
Patent 7825137 | Expires: May 12, 2027
Patent 7825137 | Expires: May 12, 2027
Patent 7825137 | Expires: May 12, 2027
Patent 7858643 | Expires: Oct 8, 2029
Patent 8217057 | Expires: Nov 6, 2029